FAERS Safety Report 8413137-7 (Version None)
Quarter: 2012Q2

REPORT INFORMATION
  Report Type: 
  Country: None (occurrence: None)
  Receive Date: 20120605
  Receipt Date: 20120530
  Transmission Date: 20120825
  Serious: No
  Sender: FDA-Public Use
  Company Number: US-AMGEN-USASP2012033860

PATIENT
  Age: 49 Year
  Sex: Female

DRUGS (2)
  1. ENBREL [Suspect]
     Indication: ARTHRITIS
  2. ENBREL [Suspect]
     Indication: FIBROMYALGIA
     Dosage: 50 MG, QWK

REACTIONS (4)
  - BURNING SENSATION [None]
  - SKIN INDURATION [None]
  - PRURITUS GENERALISED [None]
  - MASS [None]
